FAERS Safety Report 14281985 (Version 4)
Quarter: 2018Q1

REPORT INFORMATION
  Report Type: Spontaneous
  Country: US (occurrence: US)
  Receive Date: 20171213
  Receipt Date: 20180109
  Transmission Date: 20180508
  Serious: Yes (Hospitalization, Other)
  Sender: FDA-Public Use
  Company Number: US-PFIZER INC-2017527170

PATIENT
  Age: 56 Year
  Sex: Male

DRUGS (9)
  1. OXCARBAZEPINE. [Concomitant]
     Active Substance: OXCARBAZEPINE
     Indication: NERVOUS SYSTEM DISORDER
     Dosage: UNK
  2. CLONAZEPAM. [Concomitant]
     Active Substance: CLONAZEPAM
     Indication: NERVOUS SYSTEM DISORDER
     Dosage: UNK
  3. ATROPINE SULFATE/DIPHENOXYLATE HYDROCHLORIDE [Suspect]
     Active Substance: ATROPINE SULFATE\DIPHENOXYLATE HYDROCHLORIDE
     Indication: DIARRHOEA
     Dosage: 2.5-025MG, TOOK AS NEEDED.
     Dates: start: 2009, end: 201701
  4. ATROPINE SULFATE/DIPHENOXYLATE HYDROCHLORIDE [Suspect]
     Active Substance: ATROPINE SULFATE\DIPHENOXYLATE HYDROCHLORIDE
     Dosage: TAKE 8 TO 9 TABLETS DAILY AND SOMETIMES WOULD EXCEED THIS DOSE
  5. ESCITALOPRAM [Concomitant]
     Active Substance: ESCITALOPRAM OXALATE
     Indication: NERVOUS SYSTEM DISORDER
     Dosage: UNK
  6. ATROPINE SULFATE/DIPHENOXYLATE HYDROCHLORIDE [Suspect]
     Active Substance: ATROPINE SULFATE\DIPHENOXYLATE HYDROCHLORIDE
     Dosage: TAKING 2 TABS BY MOUTH EVERY 6 HOURS
     Route: 048
     Dates: start: 201706
  7. SANDOSTATIN [Concomitant]
     Active Substance: OCTREOTIDE ACETATE
     Dosage: UNK
     Dates: end: 20170621
  8. TOPIRAMATE. [Concomitant]
     Active Substance: TOPIRAMATE
     Indication: NERVOUS SYSTEM DISORDER
     Dosage: UNK
  9. COLESTIPOL [Concomitant]
     Active Substance: COLESTIPOL
     Dosage: UNK
     Dates: end: 20170621

REACTIONS (14)
  - Failure to anastomose [Unknown]
  - Pulmonary thrombosis [Unknown]
  - Liver abscess [Recovered/Resolved]
  - Colonic abscess [Unknown]
  - Neck pain [Not Recovered/Not Resolved]
  - Pyrexia [Unknown]
  - Intentional product use issue [Unknown]
  - Thrombosis [Unknown]
  - Laceration [Unknown]
  - Erythema [Unknown]
  - Sepsis [Recovered/Resolved]
  - Hepatitis [Recovered/Resolved]
  - Drug ineffective [Not Recovered/Not Resolved]
  - Fall [Not Recovered/Not Resolved]

NARRATIVE: CASE EVENT DATE: 2016
